FAERS Safety Report 5724996-0 (Version None)
Quarter: 2008Q2

REPORT INFORMATION
  Report Type: 
  Country: None (occurrence: None)
  Receive Date: 20080501
  Receipt Date: 20080425
  Transmission Date: 20081010
  Serious: Yes (Hospitalization)
  Sender: FDA-Public Use
  Company Number: FR-ROCHE-540030

PATIENT
  Sex: Female

DRUGS (2)
  1. XELODA [Suspect]
     Dosage: 2150 MG PER DAY FOR 14DAYS/21 DAYS
     Route: 048
     Dates: start: 20071005, end: 20071109
  2. XELODA [Suspect]
     Route: 048
     Dates: start: 20080101

REACTIONS (1)
  - EOSINOPHILIA [None]
